FAERS Safety Report 7243831-5 (Version None)
Quarter: 2011Q1

REPORT INFORMATION
  Report Type: 
  Country: None (occurrence: None)
  Receive Date: 20110125
  Receipt Date: 20110124
  Transmission Date: 20110831
  Serious: Yes (Hospitalization, Other)
  Sender: FDA-Public Use
  Company Number: US-PFIZER INC-2011016812

PATIENT
  Sex: Female
  Weight: 126.8 kg

DRUGS (4)
  1. GEODON [Suspect]
     Indication: SCHIZOAFFECTIVE DISORDER
     Dosage: UNK
     Route: 048
  2. NEXIUM [Concomitant]
     Dosage: 40 MG, DAILY
  3. ATIVAN [Concomitant]
     Dosage: 2 MG, AS NEEDED
  4. LITHIUM [Concomitant]
     Dosage: 600 MG, DAILY

REACTIONS (1)
  - SCHIZOAFFECTIVE DISORDER [None]
